FAERS Safety Report 7227335-1 (Version None)
Quarter: 2011Q1

REPORT INFORMATION
  Report Type: 
  Country: None (occurrence: None)
  Receive Date: 20110114
  Receipt Date: 20110110
  Transmission Date: 20110831
  Serious: Yes (Other)
  Sender: FDA-Public Use
  Company Number: US-B.I. PHARMACEUTICALS,INC./RIDGEFIELD-2011-BP-00711BP

PATIENT
  Sex: Male

DRUGS (14)
  1. VITAMIN B-12 [Concomitant]
     Indication: PROPHYLAXIS
  2. CALCIUM [Concomitant]
     Indication: PROPHYLAXIS
  3. INSPRA [Concomitant]
     Indication: HYPERTENSION
  4. BENADRYL [Concomitant]
     Indication: NASAL CONGESTION
  5. FUROSEMIDE [Concomitant]
     Indication: FLUID RETENTION
  6. PRADAXA [Suspect]
     Indication: ATRIAL FIBRILLATION
     Dosage: 300 MG
     Route: 048
     Dates: start: 20101210, end: 20101219
  7. DIGOXIN [Concomitant]
     Indication: ATRIAL FIBRILLATION
  8. LORANTIDINE [Concomitant]
     Indication: MULTIPLE ALLERGIES
  9. PACERONE [Concomitant]
     Indication: ATRIAL FIBRILLATION
  10. COREG CR [Concomitant]
     Indication: HYPERTENSION
  11. MULTIVITAMIN [Concomitant]
     Indication: PROPHYLAXIS
  12. IRON [Concomitant]
     Indication: PROPHYLAXIS
  13. LISINOPRIL [Concomitant]
     Indication: HYPERTENSION
  14. OMEPRAZOLE [Concomitant]
     Indication: GASTROOESOPHAGEAL REFLUX DISEASE

REACTIONS (1)
  - ATRIAL THROMBOSIS [None]
